FAERS Safety Report 4988003-X (Version None)
Quarter: 2006Q2

REPORT INFORMATION
  Report Type: 
  Country: None (occurrence: None)
  Receive Date: 20060426
  Receipt Date: 20060418
  Transmission Date: 20061013
  Serious: Yes (Other)
  Sender: FDA-Public Use
  Company Number: 2006026930

PATIENT
  Age: 42 Year
  Sex: Female
  Weight: 60 kg

DRUGS (3)
  1. LYRICA [Suspect]
     Indication: NEUROPATHY
     Dosage: 150 MG (75 MG, 2 IN 1 D), ORAL
     Route: 048
     Dates: start: 20050707, end: 20060103
  2. GABAPENTIN [Suspect]
     Indication: NEUROPATHY
     Dosage: 200 MG, ORAL
     Route: 048
     Dates: start: 20040309, end: 20050706
  3. LEVOTHYROXINE SODIUM [Concomitant]

REACTIONS (1)
  - EPILEPSY [None]
